FAERS Safety Report 19246711 (Version 1)
Quarter: 2021Q2

REPORT INFORMATION
  Report Type: Spontaneous
  Country: US (occurrence: US)
  Receive Date: 20210512
  Receipt Date: 20210512
  Transmission Date: 20210717
  Serious: No
  Sender: FDA-Public Use
  Company Number: None

PATIENT
  Sex: Female

DRUGS (3)
  1. COSENTYX [Suspect]
     Active Substance: SECUKINUMAB
  2. HUMIRA [Suspect]
     Active Substance: ADALIMUMAB
  3. REMICADE [Suspect]
     Active Substance: INFLIXIMAB

REACTIONS (1)
  - Lupus-like syndrome [None]
